FAERS Safety Report 7399245-0 (Version None)
Quarter: 2011Q2

REPORT INFORMATION
  Report Type: 
  Country: None (occurrence: None)
  Receive Date: 20110407
  Receipt Date: 20110331
  Transmission Date: 20111010
  Serious: Yes (Hospitalization)
  Sender: FDA-Public Use
  Company Number: JP-PFIZER INC-JP-WYE-H18287210

PATIENT
  Age: 65 Year
  Sex: Male

DRUGS (1)
  1. ANCARON [Suspect]
     Indication: VENTRICULAR TACHYCARDIA
     Dosage: UNK
     Route: 048

REACTIONS (4)
  - THYROIDITIS [None]
  - HYPERTHYROIDISM [None]
  - ATRIAL FIBRILLATION [None]
  - CARDIAC FAILURE [None]
